FAERS Safety Report 4611548-9 (Version None)
Quarter: 2005Q1

REPORT INFORMATION
  Report Type: 
  Country: None (occurrence: None)
  Receive Date: 20050317
  Receipt Date: 20050307
  Transmission Date: 20050727
  Serious: Yes (Life-Threatening, Hospitalization)
  Sender: FDA-Public Use
  Company Number: GB-ROCHE-397670

PATIENT
  Age: 20 Year
  Sex: Female
  Weight: 74 kg

DRUGS (2)
  1. ROACCUTANE [Suspect]
     Route: 048
     Dates: start: 20040915, end: 20050214
  2. DIANETTE [Suspect]
     Route: 048
     Dates: start: 20040915, end: 20050129

REACTIONS (2)
  - INTRACRANIAL VENOUS SINUS THROMBOSIS [None]
  - PULMONARY EMBOLISM [None]
